FAERS Safety Report 9767765 (Version 1)
Quarter: 2013Q4

REPORT INFORMATION
  Report Type: Spontaneous
  Country: US (occurrence: None)
  Receive Date: 20131213
  Receipt Date: 20131213
  Transmission Date: 20140711
  Serious: Yes (Other)
  Sender: FDA-Public Use
  Company Number: 2013SA025829

PATIENT
  Age: 52 Year
  Sex: Male

DRUGS (1)
  1. CAPZASIN-HP / UNKNOWN / UNKNOWN [Suspect]
     Indication: PRODUCT USED FOR UNKNOWN INDICATION

REACTIONS (2)
  - Blister [None]
  - Skin exfoliation [None]
